FAERS Safety Report 7474180-8 (Version None)
Quarter: 2011Q2

REPORT INFORMATION
  Report Type: 
  Country: None (occurrence: None)
  Receive Date: 20110511
  Receipt Date: 20110505
  Transmission Date: 20111010
  Serious: Yes (Other)
  Sender: FDA-Public Use
  Company Number: AU-GILEAD-2011-0039182

PATIENT
  Age: 46 Year
  Sex: Male

DRUGS (3)
  1. TENOFOVIR DISOPROXIL FUMARATE [Suspect]
     Indication: HIV INFECTION
  2. ISENTRESS [Concomitant]
     Indication: HIV INFECTION
  3. ATAZANAVIR [Concomitant]
     Indication: HIV INFECTION

REACTIONS (1)
  - RENAL IMPAIRMENT [None]
